FAERS Safety Report 6566443-5 (Version None)
Quarter: 2010Q1

REPORT INFORMATION
  Report Type: 
  Country: None (occurrence: None)
  Receive Date: 20100202
  Receipt Date: 20100120
  Transmission Date: 20100710
  Serious: Yes (Other)
  Sender: FDA-Public Use
  Company Number: PHHY2010JP03273

PATIENT
  Age: 72 Year
  Sex: Male

DRUGS (1)
  1. ZOMETA [Suspect]
     Dosage: UNK
     Route: 042
     Dates: start: 20070501, end: 20080301

REACTIONS (1)
  - OSTEONECROSIS [None]
